FAERS Safety Report 18294240 (Version 3)
Quarter: 2020Q4

REPORT INFORMATION
  Report Type: Spontaneous
  Country: US (occurrence: US)
  Receive Date: 20200922
  Receipt Date: 20201020
  Transmission Date: 20210113
  Serious: Yes (Hospitalization, Other)
  Sender: FDA-Public Use
  Company Number: US-UNITED THERAPEUTICS-UNT-2020-014187

PATIENT
  Age: 73 Year
  Sex: Female
  Weight: 115.65 kg

DRUGS (2)
  1. REMODULIN [Suspect]
     Active Substance: TREPROSTINIL
     Indication: PULMONARY ARTERIAL HYPERTENSION
     Dosage: UNK, CONTINUING
     Route: 041
     Dates: start: 20170413
  2. REMODULIN [Suspect]
     Active Substance: TREPROSTINIL
     Dosage: 0.077 ?G/KG, CONTINUING
     Route: 041

REACTIONS (3)
  - Pulmonary hypertension [Unknown]
  - Chest pain [Recovered/Resolved]
  - Fluid overload [Unknown]

NARRATIVE: CASE EVENT DATE: 20200917
